FAERS Safety Report 5574142-1 (Version None)
Quarter: 2007Q4

REPORT INFORMATION
  Report Type: 
  Country: None (occurrence: None)
  Receive Date: 20071221
  Receipt Date: 20071211
  Transmission Date: 20080405
  Serious: Yes (Other)
  Sender: FDA-Public Use
  Company Number: ENC200700189

PATIENT
  Age: 49 Year
  Sex: Female

DRUGS (5)
  1. ARGATROBAN (ARGTROBAN) INJECTION, 100 MG/100ML [Suspect]
     Indication: THROMBOSIS PROPHYLAXIS
     Dosage: 40 MG, INTRAVENOUS; 10 MG, INTRAVENOUS; 22 MG, INTRAVENOUS
     Route: 042
     Dates: start: 20071023, end: 20071023
  2. INSULIN, REGULAR (INSULIN) [Concomitant]
  3. CALCIUM CHLORIDE /00203801/ (CALCIUM CHLORIDE DIHYDRATE) [Concomitant]
  4. MAGNESIUM SULFATE [Concomitant]
  5. NEO-SYNEPHRINE /00116302/ (PHENYLEPPHRINE HYDROCHLORIDE) [Concomitant]

REACTIONS (7)
  - ACTIVATED PARTIAL THROMBOPLASTIN TIME PROLONGED [None]
  - COAGULATION TIME PROLONGED [None]
  - HAEMOGLOBIN DECREASED [None]
  - HYPOTENSION [None]
  - INTERNATIONAL NORMALISED RATIO INCREASED [None]
  - THROMBOCYTOPENIA [None]
  - THROMBOSIS IN DEVICE [None]
